FAERS Safety Report 5952698-4 (Version None)
Quarter: 2008Q4

REPORT INFORMATION
  Report Type: 
  Country: None (occurrence: None)
  Receive Date: 20081114
  Receipt Date: 20081104
  Transmission Date: 20090506
  Serious: Yes (Hospitalization, Other)
  Sender: FDA-Public Use
  Company Number: US-BAYER-200834326NA

PATIENT
  Age: 56 Year
  Sex: Female

DRUGS (7)
  1. BETASERON [Suspect]
     Indication: RELAPSING-REMITTING MULTIPLE SCLEROSIS
     Route: 058
     Dates: start: 20030101, end: 20071201
  2. BETASERON [Suspect]
     Route: 058
     Dates: start: 20080501
  3. BETASERON [Suspect]
     Dosage: TOTAL DAILY DOSE: 8 MIU
     Route: 058
     Dates: start: 20081024
  4. WELLBUTRIN [Concomitant]
     Indication: DEPRESSION
     Dosage: TOTAL DAILY DOSE: 300 MG
     Route: 048
  5. PREMARIN [Concomitant]
     Indication: HORMONE REPLACEMENT THERAPY
     Route: 048
  6. ATENOLOL [Concomitant]
     Indication: MIGRAINE
     Dosage: TOTAL DAILY DOSE: 50 MG
  7. RELPAX [Concomitant]
     Indication: MIGRAINE
     Route: 048

REACTIONS (4)
  - CHEST PAIN [None]
  - COLON CANCER [None]
  - COUGH [None]
  - PYREXIA [None]
